FAERS Safety Report 25075566 (Version 1)
Quarter: 2025Q1

REPORT INFORMATION
  Report Type: Spontaneous
  Country: IT (occurrence: IT)
  Receive Date: 20250313
  Receipt Date: 20250313
  Transmission Date: 20250409
  Serious: Yes (Other)
  Sender: ALEXION PHARMACEUTICALS
  Company Number: None

PATIENT
  Age: 60 Year

DRUGS (15)
  1. ESOMEPRAZOLE [Suspect]
     Active Substance: ESOMEPRAZOLE
     Indication: Gastrooesophageal reflux disease
     Dosage: 20 MILLIGRAM, 1/DAY
  2. ESOMEPRAZOLE [Suspect]
     Active Substance: ESOMEPRAZOLE
     Indication: Oesophagitis
  3. ESOMEPRAZOLE [Suspect]
     Active Substance: ESOMEPRAZOLE
     Indication: Gastritis
  4. LEVOSULPIRIDE [Suspect]
     Active Substance: LEVOSULPIRIDE
     Indication: Dyspepsia
     Dosage: 25 MILLIGRAM, 1/DAY
  5. SINEMET [Suspect]
     Active Substance: CARBIDOPA\LEVODOPA
     Indication: Parkinson^s disease
     Dosage: 1 DOSAGE FORM, 1/DAY
  6. SINEMET [Suspect]
     Active Substance: CARBIDOPA\LEVODOPA
  7. CARVEDILOL [Concomitant]
     Active Substance: CARVEDILOL
     Indication: Hypertensive heart disease
     Dosage: 25 MILLIGRAM, 1/DAY
  8. CARVEDILOL [Concomitant]
     Active Substance: CARVEDILOL
     Indication: Hypertension
  9. CALCITRIOL [Concomitant]
     Active Substance: CALCITRIOL
     Indication: Hyperparathyroidism
     Dosage: 0.25 MICROGRAM, 1/DAY
  10. TRESIBA [Concomitant]
     Active Substance: INSULIN DEGLUDEC
     Indication: Type 1 diabetes mellitus
  11. HUMALOG [Concomitant]
     Active Substance: INSULIN LISPRO
     Indication: Type 1 diabetes mellitus
  12. VELPHORO [Concomitant]
     Active Substance: SUCROFERRIC OXYHYDROXIDE
     Indication: Dialysis
  13. PARICALCITOL [Concomitant]
     Active Substance: PARICALCITOL
     Indication: Hyperparathyroidism
  14. PARICALCITOL [Concomitant]
     Active Substance: PARICALCITOL
     Indication: Chronic kidney disease
  15. PARICALCITOL [Concomitant]
     Active Substance: PARICALCITOL
     Indication: Dialysis

REACTIONS (3)
  - Parkinsonism [Recovered/Resolved]
  - Condition aggravated [Recovered/Resolved]
  - Extrapyramidal disorder [Recovered/Resolved]
